FAERS Safety Report 6833939-8 (Version None)
Quarter: 2010Q3

REPORT INFORMATION
  Report Type: 
  Country: None (occurrence: None)
  Receive Date: 20100712
  Receipt Date: 20070405
  Transmission Date: 20110219
  Serious: No
  Sender: FDA-Public Use
  Company Number: US-PFIZER INC-2007027815

PATIENT
  Sex: Male
  Weight: 117.93 kg

DRUGS (8)
  1. CHANTIX [Suspect]
     Indication: SMOKING CESSATION THERAPY
     Dates: start: 20070402
  2. TRAZODONE HYDROCHLORIDE [Concomitant]
  3. RESTORIL [Concomitant]
  4. CERTAGEN [Concomitant]
  5. ALLEGRA D 24 HOUR [Concomitant]
  6. AVODART [Concomitant]
  7. UROXATRAL [Concomitant]
  8. LEXAPRO [Concomitant]

REACTIONS (1)
  - CONSTIPATION [None]
